FAERS Safety Report 19692450 (Version 1)
Quarter: 2021Q3

REPORT INFORMATION
  Report Type: Spontaneous
  Country: US (occurrence: US)
  Receive Date: 20210812
  Receipt Date: 20210812
  Transmission Date: 20211014
  Serious: Yes (Hospitalization)
  Sender: FDA-Public Use
  Company Number: US-SA-2021SA267005

PATIENT
  Age: 56 Year
  Sex: Female

DRUGS (2)
  1. DUPIXENT [Suspect]
     Active Substance: DUPILUMAB
     Indication: ASTHMA
     Dosage: 300 MG/ 2ML, QOW
     Route: 058
     Dates: start: 20191212, end: 202108
  2. CORTICOSTEROID NOS [Suspect]
     Active Substance: CORTICOSTEROID NOS

REACTIONS (3)
  - Blood glucose increased [Not Recovered/Not Resolved]
  - Hernia [Not Recovered/Not Resolved]
  - Product use issue [Unknown]

NARRATIVE: CASE EVENT DATE: 20191212
